FAERS Safety Report 7943729-0 (Version None)
Quarter: 2011Q4

REPORT INFORMATION
  Report Type: 
  Country: None (occurrence: None)
  Receive Date: 20111128
  Receipt Date: 20111125
  Transmission Date: 20120403
  Serious: Yes (Death, Hospitalization)
  Sender: FDA-Public Use
  Company Number: DK-ABBOTT-11P-044-0851950-00

PATIENT
  Sex: Female
  Weight: 48 kg

DRUGS (2)
  1. HUMIRA [Suspect]
     Indication: RHEUMATOID ARTHRITIS
     Dates: start: 20090723, end: 20110830
  2. HUMIRA [Suspect]

REACTIONS (1)
  - LUNG INFILTRATION MALIGNANT [None]
